FAERS Safety Report 9499832 (Version 1)
Quarter: 2013Q3

REPORT INFORMATION
  Report Type: Spontaneous
  Country: IN (occurrence: None)
  Receive Date: 20130903
  Receipt Date: 20130903
  Transmission Date: 20140515
  Serious: Yes (Other)
  Sender: FDA-Public Use
  Company Number: 09-AUR-08809

PATIENT
  Age: 21 Year
  Sex: Male

DRUGS (1)
  1. MIRTAZAPINE [Suspect]
     Indication: DEPRESSIVE SYMPTOM

REACTIONS (9)
  - Sleep terror [None]
  - Confusional state [None]
  - Palpitations [None]
  - Hyperhidrosis [None]
  - Fear [None]
  - Nightmare [None]
  - Malaise [None]
  - Sedation [None]
  - Treatment noncompliance [None]
